FAERS Safety Report 5393097-6 (Version None)
Quarter: 2007Q3

REPORT INFORMATION
  Report Type: 
  Country: None (occurrence: None)
  Receive Date: 20070718
  Receipt Date: 20070704
  Transmission Date: 20080115
  Serious: Yes (Hospitalization)
  Sender: FDA-Public Use
  Company Number: 02100-JPN-06-0542

PATIENT
  Age: 88 Year
  Sex: Female

DRUGS (5)
  1. CILOSTAZOL [Suspect]
     Indication: ANGINA PECTORIS
     Dosage: 200 MG, ORAL
     Route: 048
     Dates: start: 20060906, end: 20060913
  2. TICLOPIDINE HYDROCHLORIDE [Suspect]
     Indication: ANGINA PECTORIS
     Dosage: 200 MG, ORAL
     Route: 048
     Dates: start: 20060608, end: 20060906
  3. VALSARTAN [Suspect]
     Indication: HYPERTENSION
     Dosage: 160 MG, ORAL
     Route: 048
     Dates: start: 20060627, end: 20060913
  4. ATORVASTATIN CALCIUM [Suspect]
     Indication: HYPERLIPIDAEMIA
     Dosage: 10 MG, ORAL
     Route: 048
     Dates: start: 20060719, end: 20060823
  5. CORONARY STENT PLACEMENT [Concomitant]

REACTIONS (1)
  - DERMATITIS EXFOLIATIVE [None]
